FAERS Safety Report 5474310-3 (Version None)
Quarter: 2007Q4

REPORT INFORMATION
  Report Type: 
  Country: None (occurrence: None)
  Receive Date: 20071002
  Receipt Date: 20070621
  Transmission Date: 20080405
  Serious: Yes (Hospitalization)
  Sender: FDA-Public Use
  Company Number: US-ASTRAZENECA-2007UW14805

PATIENT
  Age: 81 Year
  Sex: Female
  Weight: 54.4 kg

DRUGS (2)
  1. ARIMIDEX [Suspect]
     Indication: BREAST CANCER
     Route: 048
     Dates: start: 20070501
  2. DIOVAN [Concomitant]

REACTIONS (4)
  - ANAEMIA [None]
  - MYALGIA [None]
  - NIGHT SWEATS [None]
  - PAIN IN JAW [None]
